FAERS Safety Report 7538354-X (Version None)
Quarter: 2011Q2

REPORT INFORMATION
  Report Type: 
  Country: None (occurrence: None)
  Receive Date: 20110609
  Receipt Date: 20080704
  Transmission Date: 20111010
  Serious: Yes (Other)
  Sender: FDA-Public Use
  Company Number: PHHY2008JP11793

PATIENT
  Sex: Female
  Weight: 55 kg

DRUGS (2)
  1. DIOVAN [Suspect]
     Dosage: 40MG/DAY
     Route: 048
  2. DIOVAN [Suspect]
     Indication: HYPERTENSION
     Dosage: 80 MG, QD
     Route: 048
     Dates: start: 20060909

REACTIONS (4)
  - ANAEMIA [None]
  - UTERINE LEIOMYOMA [None]
  - BLOOD PRESSURE DECREASED [None]
  - HAEMATOCRIT DECREASED [None]
